FAERS Safety Report 7390251-9 (Version None)
Quarter: 2011Q2

REPORT INFORMATION
  Report Type: 
  Country: None (occurrence: None)
  Receive Date: 20110401
  Receipt Date: 20110323
  Transmission Date: 20111010
  Serious: Yes (Hospitalization)
  Sender: FDA-Public Use
  Company Number: FR-ROCHE-767624

PATIENT
  Sex: Male

DRUGS (3)
  1. PEGASYS [Suspect]
     Route: 058
     Dates: start: 20091001, end: 20110120
  2. PEGASYS [Suspect]
     Route: 058
     Dates: start: 20110222
  3. NILOTINIB [Suspect]
     Route: 048
     Dates: start: 20091001

REACTIONS (2)
  - PLEURAL EFFUSION [None]
  - PERICARDIAL EFFUSION [None]
